FAERS Safety Report 7292623-X (Version None)
Quarter: 2011Q1

REPORT INFORMATION
  Report Type: 
  Country: None (occurrence: None)
  Receive Date: 20110215
  Receipt Date: 20110209
  Transmission Date: 20110831
  Serious: Yes (Other)
  Sender: FDA-Public Use
  Company Number: US-JNJFOC-20101108656

PATIENT
  Age: 37 Year
  Sex: Male

DRUGS (15)
  1. CLOZAPINE [Suspect]
     Route: 065
  2. CLOZAPINE [Suspect]
     Indication: SCHIZOPHRENIA
     Route: 065
  3. CLOZAPINE [Suspect]
     Route: 065
  4. CLOMIPRAMINE HCL [Suspect]
     Indication: PRODUCT USED FOR UNKNOWN INDICATION
     Route: 065
  5. HALOPERIDOL [Suspect]
     Indication: PRODUCT USED FOR UNKNOWN INDICATION
     Route: 065
  6. CLONAZEPAM [Suspect]
     Indication: PRODUCT USED FOR UNKNOWN INDICATION
     Route: 065
  7. BENZTROPINE MESYLATE [Suspect]
     Indication: PRODUCT USED FOR UNKNOWN INDICATION
     Route: 065
  8. LANSOPRAZOLE [Suspect]
     Indication: PRODUCT USED FOR UNKNOWN INDICATION
     Route: 065
  9. CLOZAPINE [Suspect]
     Route: 065
  10. ESOMEPRAZOLE [Suspect]
     Indication: PRODUCT USED FOR UNKNOWN INDICATION
     Route: 065
  11. TRAZODONE [Suspect]
     Indication: ILL-DEFINED DISORDER
     Route: 065
  12. DISULFIRAM [Suspect]
     Indication: PRODUCT USED FOR UNKNOWN INDICATION
     Route: 065
  13. DONEPEZIL HCL [Suspect]
     Indication: ILL-DEFINED DISORDER
     Route: 065
  14. FLUOXETINE [Suspect]
     Indication: PRODUCT USED FOR UNKNOWN INDICATION
     Route: 065
  15. ZOLPIDEM [Suspect]
     Indication: ILL-DEFINED DISORDER
     Route: 065

REACTIONS (5)
  - UPPER RESPIRATORY TRACT INFECTION [None]
  - INFLUENZA LIKE ILLNESS [None]
  - RHABDOMYOLYSIS [None]
  - LEUKOCYTOSIS [None]
  - SINOBRONCHITIS [None]
